FAERS Safety Report 9525198 (Version 1)
Quarter: 2013Q1

REPORT INFORMATION
  Report Type: Spontaneous
  Country: US (occurrence: None)
  Receive Date: 20130314
  Receipt Date: 20130314
  Transmission Date: 20140127
  Serious: No
  Sender: FDA-Public Use
  Company Number: 1301USA012787

PATIENT
  Age: 69 Year
  Sex: Male

DRUGS (3)
  1. VICTRELIS [Suspect]
     Indication: HEPATITIS C
     Dosage: 600 MG, QD, ORAL
     Route: 048
     Dates: start: 201109, end: 201209
  2. PEGINTRON [Suspect]
     Indication: HEPATITIS C
     Dosage: 150 MICROGRAM, QW, SUBCUTANEOUS
     Route: 058
     Dates: start: 201109, end: 201209
  3. RIBASPHERE (RIBAVIRIN) [Suspect]

REACTIONS (2)
  - Hepatitis C RNA increased [None]
  - Underdose [None]
